FAERS Safety Report 8806110 (Version 3)
Quarter: 2013Q1

REPORT INFORMATION
  Report Type: Report from Study
  Country: None (occurrence: US)
  Receive Date: 20120925
  Receipt Date: 20130122
  Transmission Date: 20140127
  Serious: Yes (Other)
  Sender: FDA-Public Use
  Company Number: US-ABBOTT-12P-163-0985529-00

PATIENT
  Sex: Male
  Weight: 81.72 kg

DRUGS (10)
  1. ANDROGEL [Suspect]
     Indication: BLOOD TESTOSTERONE DECREASED
     Dosage: 2.5 GRAM DAILY
     Dates: start: 201208, end: 20120827
  2. LISINOPRIL [Concomitant]
     Indication: BLOOD PRESSURE ABNORMAL
  3. TAMSULOSIN [Concomitant]
     Indication: BENIGN PROSTATIC HYPERPLASIA
  4. NIACIN [Concomitant]
     Indication: BLOOD CHOLESTEROL ABNORMAL
  5. SIMVASTATIN [Concomitant]
     Indication: BLOOD CHOLESTEROL ABNORMAL
  6. METOPROLOL [Concomitant]
     Indication: CARDIAC MURMUR
  7. ASPIRIN [Concomitant]
     Indication: ANTICOAGULANT THERAPY
     Dosage: 325 MG DAILY
  8. MULTIVITAMIN [Concomitant]
     Indication: VITAMIN SUPPLEMENTATION
  9. OXYTROL [Concomitant]
     Indication: BLADDER DISORDER
  10. OXYTROL [Concomitant]
     Indication: RENAL DISORDER

REACTIONS (5)
  - Local swelling [Recovered/Resolved]
  - Dyspnoea [Recovering/Resolving]
  - Nasopharyngitis [Not Recovered/Not Resolved]
  - Fatigue [Not Recovered/Not Resolved]
  - Irritability [Recovered/Resolved]
